FAERS Safety Report 7280529-1 (Version None)
Quarter: 2011Q1

REPORT INFORMATION
  Report Type: 
  Country: None (occurrence: None)
  Receive Date: 20110208
  Receipt Date: 20110202
  Transmission Date: 20110831
  Serious: Yes (Other)
  Sender: FDA-Public Use
  Company Number: BR-SANOFI-AVENTIS-2010SA038172

PATIENT
  Sex: Female

DRUGS (12)
  1. OPTIPEN [Suspect]
  2. EUTHYROX [Concomitant]
     Route: 048
  3. ENALAPRIL MALEATE [Concomitant]
     Indication: HYPERTENSION
     Route: 048
  4. HUMALOG [Concomitant]
  5. ALL OTHER THERAPEUTIC PRODUCTS [Concomitant]
  6. FLUOXETINE HYDROCHLORIDE [Concomitant]
     Route: 048
     Dates: start: 20080101
  7. SIMVASTATIN [Concomitant]
     Route: 048
     Dates: start: 20100401
  8. METFORMIN [Concomitant]
     Route: 048
  9. APIDRA [Concomitant]
     Dosage: 4 IU AT LUNCH + DINNER ACCORDING TO GLYCEMIA
     Route: 058
     Dates: start: 20100627
  10. MEMANTINE [Concomitant]
     Route: 048
     Dates: start: 20080101
  11. LANTUS [Suspect]
     Dates: start: 20080101
  12. GLIMEPIRIDE [Concomitant]
     Route: 048

REACTIONS (5)
  - HYPERGLYCAEMIA [None]
  - AMNESIA [None]
  - DEMENTIA ALZHEIMER'S TYPE [None]
  - MEMORY IMPAIRMENT [None]
  - FATIGUE [None]
